FAERS Safety Report 18569768 (Version 1)
Quarter: 2020Q4

REPORT INFORMATION
  Report Type: Spontaneous
  Country: US (occurrence: US)
  Receive Date: 20201202
  Receipt Date: 20201202
  Transmission Date: 20210114
  Serious: Yes (Hospitalization)
  Sender: FDA-Public Use
  Company Number: None

PATIENT
  Age: 63 Year
  Sex: Male

DRUGS (1)
  1. REMDESIVIR. [Suspect]
     Active Substance: REMDESIVIR
     Indication: COVID-19
     Route: 042
     Dates: start: 20201123, end: 20201124

REACTIONS (3)
  - Aspartate aminotransferase increased [None]
  - Cardiac arrest [None]
  - Alanine aminotransferase increased [None]

NARRATIVE: CASE EVENT DATE: 20201125
